FAERS Safety Report 4964954-7 (Version None)
Quarter: 2006Q2

REPORT INFORMATION
  Report Type: 
  Country: None (occurrence: None)
  Receive Date: 20060406
  Receipt Date: 20060329
  Transmission Date: 20061013
  Serious: Yes (Other)
  Sender: FDA-Public Use
  Company Number: 2006AP01519

PATIENT
  Age: 83 Year
  Sex: Female
  Weight: 39 kg

DRUGS (4)
  1. IRESSA [Suspect]
     Indication: LUNG ADENOCARCINOMA STAGE I
     Route: 048
     Dates: start: 20040101, end: 20040101
  2. IRESSA [Suspect]
     Route: 048
     Dates: start: 20041001, end: 20041001
  3. IRESSA [Suspect]
     Route: 048
     Dates: start: 20041001
  4. FLUTICASONE PROPIONATE [Concomitant]
     Dates: start: 19890101

REACTIONS (3)
  - ANOREXIA [None]
  - MALAISE [None]
  - PNEUMONIA [None]
